FAERS Safety Report 10726502 (Version 1)
Quarter: 2015Q1

REPORT INFORMATION
  Report Type: Spontaneous
  Country: PL (occurrence: PL)
  Receive Date: 20150121
  Receipt Date: 20150121
  Transmission Date: 20150721
  Serious: Yes (Other)
  Sender: FDA-Public Use
  Company Number: PL-TEVA-534632ISR

PATIENT
  Age: 70 Year
  Sex: Male
  Weight: 80 kg

DRUGS (12)
  1. BAZETHAM [Concomitant]
     Indication: BENIGN PROSTATIC HYPERPLASIA
     Dosage: .4 MILLIGRAM DAILY;
     Route: 048
  2. VICEBROL FORTE [Concomitant]
     Indication: CIRCULATORY COLLAPSE
     Dosage: 10 MILLIGRAM DAILY;
     Route: 048
  3. LACIPIL [Concomitant]
     Active Substance: LACIDIPINE
     Indication: HYPERTENSION
     Dosage: 10 MILLIGRAM DAILY;
     Route: 048
  4. METFORMAX 500 [Suspect]
     Active Substance: METFORMIN HYDROCHLORIDE
     Dosage: 1000 MILLIGRAM DAILY; EVENING
     Route: 048
  5. TRITACE [Concomitant]
     Active Substance: RAMIPRIL
     Indication: HYPERTENSION
     Dosage: 10 MILLIGRAM DAILY;
     Route: 048
  6. CONCOR [Concomitant]
     Active Substance: BISOPROLOL FUMARATE
     Indication: HYPERTENSION
     Dosage: 5 MILLIGRAM DAILY;
     Route: 048
  7. INDIX [Concomitant]
     Active Substance: INDAPAMIDE
     Indication: HYPERTENSION
     Dosage: 1.5 MILLIGRAM DAILY;
     Route: 048
  8. ARORVOX [Concomitant]
     Dosage: 20 MILLIGRAM DAILY;
     Route: 048
  9. ASPARGIN [Concomitant]
     Active Substance: ASPARTIC ACID
     Indication: CIRCULATORY COLLAPSE
     Dosage: 1 DOSAGE FORMS DAILY; 1 TABLET 300 MG PORASSIUM + 72 MG MAGNESIUM
     Route: 048
  10. METFORMAX 500 [Suspect]
     Active Substance: METFORMIN HYDROCHLORIDE
     Indication: TYPE 2 DIABETES MELLITUS
     Dosage: 500 MILLIGRAM DAILY; MORNING
     Route: 048
  11. AMARYL [Concomitant]
     Active Substance: GLIMEPIRIDE
     Indication: TYPE 2 DIABETES MELLITUS
     Dosage: 3 MILLIGRAM DAILY;
     Route: 048
  12. ACARD [Concomitant]
     Active Substance: ASPIRIN
     Indication: CIRCULATORY COLLAPSE
     Dosage: 75 MILLIGRAM DAILY;
     Route: 048

REACTIONS (5)
  - Nausea [Recovered/Resolved]
  - Product odour abnormal [Unknown]
  - Eructation [Recovered/Resolved]
  - Cardiac failure [Unknown]
  - Weight decreased [Unknown]

NARRATIVE: CASE EVENT DATE: 20141210
